FAERS Safety Report 9941085 (Version 1)
Quarter: 2014Q1

REPORT INFORMATION
  Report Type: Spontaneous
  Country: US (occurrence: US)
  Receive Date: 20140303
  Receipt Date: 20140303
  Transmission Date: 20141002
  Serious: Yes (Hospitalization)
  Sender: FDA-Public Use
  Company Number: US-GLAXOSMITHKLINE-A1061907A

PATIENT
  Age: 60 Year
  Sex: Female

DRUGS (9)
  1. BENLYSTA [Suspect]
     Indication: SYSTEMIC LUPUS ERYTHEMATOSUS
     Route: 042
     Dates: start: 2010
  2. SPIRIVA [Concomitant]
  3. LAMOTRIGINE [Concomitant]
  4. IMURAN [Concomitant]
  5. PREVACID [Concomitant]
  6. CLONAZEPAM [Concomitant]
  7. POTASSIUM [Concomitant]
  8. DIOVAN [Concomitant]
  9. PRO-AIR [Concomitant]

REACTIONS (6)
  - Atrial fibrillation [Not Recovered/Not Resolved]
  - Systemic lupus erythematosus [Not Recovered/Not Resolved]
  - Dyspnoea [Not Recovered/Not Resolved]
  - Pyrexia [Not Recovered/Not Resolved]
  - Heart rate increased [Not Recovered/Not Resolved]
  - Hypertension [Not Recovered/Not Resolved]
